FAERS Safety Report 4954114-8 (Version None)
Quarter: 2006Q1

REPORT INFORMATION
  Report Type: 
  Country: None (occurrence: None)
  Receive Date: 20060327
  Receipt Date: 20060320
  Transmission Date: 20060701
  Serious: Yes (Other)
  Sender: FDA-Public Use
  Company Number: PT-GLAXOSMITHKLINE-B0417012A

PATIENT
  Age: 37 Year
  Sex: Female
  Weight: 70 kg

DRUGS (1)
  1. BECLOMETHASONE DIPROPIONATE [Suspect]
     Dosage: 500UG PER DAY
     Route: 055
     Dates: start: 19990101

REACTIONS (2)
  - DIZZINESS [None]
  - TONGUE OEDEMA [None]
